FAERS Safety Report 5801607-7 (Version None)
Quarter: 2008Q3

REPORT INFORMATION
  Report Type: 
  Country: None (occurrence: None)
  Receive Date: 20080702
  Receipt Date: 20080619
  Transmission Date: 20090109
  Serious: Yes (Hospitalization)
  Sender: FDA-Public Use
  Company Number: 235865J08USA

PATIENT
  Age: 55 Year
  Sex: Male

DRUGS (1)
  1. REBIF [Suspect]
     Indication: MULTIPLE SCLEROSIS
     Dosage: 44 MCG, 3 IN 1 WEEKS, SUBCUTANEOUS
     Route: 058
     Dates: start: 20030425, end: 20080501

REACTIONS (3)
  - COLON NEOPLASM [None]
  - INTERVERTEBRAL DISC PROTRUSION [None]
  - SECONDARY PROGRESSIVE MULTIPLE SCLEROSIS [None]
